FAERS Safety Report 8031807-X (Version None)
Quarter: 2012Q1

REPORT INFORMATION
  Report Type: 
  Country: None (occurrence: None)
  Receive Date: 20120109
  Receipt Date: 20120106
  Transmission Date: 20120608
  Serious: Yes (Other)
  Sender: FDA-Public Use
  Company Number: US-ROCHE-GNE323260

PATIENT
  Sex: Female
  Weight: 83.99 kg

DRUGS (1)
  1. XOLAIR [Suspect]
     Indication: ASTHMA
     Route: 030
     Dates: start: 20110401

REACTIONS (3)
  - FEELING ABNORMAL [None]
  - CHEST PAIN [None]
  - THROAT IRRITATION [None]
